FAERS Safety Report 9328197 (Version 1)
Quarter: 2013Q2

REPORT INFORMATION
  Report Type: Report from Study
  Country: FI (occurrence: FI)
  Receive Date: 20130604
  Receipt Date: 20130604
  Transmission Date: 20140414
  Serious: Yes (Hospitalization)
  Sender: FDA-Public Use
  Company Number: FI-TEVA-369649ISR

PATIENT
  Age: 51 Year
  Sex: Male
  Weight: 78 kg

DRUGS (8)
  1. OXALIPLATIN [Suspect]
     Indication: COLORECTAL CANCER
     Dosage: Q2W
     Route: 042
     Dates: start: 20121017, end: 20121019
  2. TIVOZANIB [Suspect]
     Indication: COLORECTAL CANCER
     Dosage: 1.5 MILLIGRAM DAILY;
     Route: 048
     Dates: start: 20121017, end: 20121019
  3. FLUOROURACIL [Suspect]
     Indication: COLORECTAL CANCER
     Dosage: Q2W
     Route: 040
     Dates: start: 20121017, end: 20121019
  4. FLUOROURACIL [Suspect]
     Route: 042
     Dates: start: 20121017, end: 20121019
  5. LEUCOVORIN [Suspect]
     Indication: COLORECTAL CANCER
     Dosage: Q2W
     Route: 042
     Dates: start: 20121017, end: 20121019
  6. COVERSYL [Concomitant]
     Dates: start: 2005
  7. ZANIDIP [Concomitant]
  8. DIFORMIN [Concomitant]
     Dates: end: 20121024

REACTIONS (5)
  - Abdominal pain [Recovered/Resolved]
  - Heart rate increased [Recovered/Resolved]
  - C-reactive protein increased [Recovered/Resolved]
  - Hypertension [Recovered/Resolved]
  - Pyrexia [Recovered/Resolved]
